FAERS Safety Report 12192000 (Version 2)
Quarter: 2016Q2

REPORT INFORMATION
  Report Type: Other
  Country: IT (occurrence: IT)
  Receive Date: 20160318
  Receipt Date: 20160403
  Transmission Date: 20160815
  Serious: Yes (Hospitalization)
  Sender: FDA-Public Use
  Company Number: IT-MYLANLABS-2016M1011635

PATIENT

DRUGS (9)
  1. DELORAZEPAM [Suspect]
     Active Substance: DELORAZEPAM
     Indication: ANXIETY
     Dosage: 10 MG, TOTAL
     Dates: start: 20160208, end: 20160208
  2. DELORAZEPAM ALTER [Concomitant]
     Indication: PRODUCT USED FOR UNKNOWN INDICATION
     Dosage: 1 DF, QD
  3. CARBOLITHIUM [Concomitant]
     Active Substance: LITHIUM CARBONATE
     Indication: PRODUCT USED FOR UNKNOWN INDICATION
     Dosage: 75 MG, BID
  4. RISPERIDONE. [Suspect]
     Active Substance: RISPERIDONE
     Indication: BIPOLAR DISORDER
     Dosage: 32 MG, TOTAL
     Route: 048
     Dates: start: 20160208, end: 20160208
  5. CARDIRENE [Suspect]
     Active Substance: ASPIRIN DL-LYSINE
     Indication: PAIN
     Dosage: 375 MG TOTAL
     Route: 048
     Dates: start: 20160208, end: 20160208
  6. PROPRANOLOL HYDROCHLORIDE. [Concomitant]
     Active Substance: PROPRANOLOL HYDROCHLORIDE
     Indication: PRODUCT USED FOR UNKNOWN INDICATION
     Dosage: 1 DF, QD
  7. DEPAKIN CHRONO                     /01294701/ [Suspect]
     Active Substance: VALPROIC ACID
     Dosage: 1 DF, QD
  8. CARDIRENE [Suspect]
     Active Substance: ASPIRIN DL-LYSINE
     Dosage: 1 DF, QD
  9. DEPAKIN CHRONO                     /01294701/ [Suspect]
     Active Substance: VALPROIC ACID
     Indication: BIPOLAR DISORDER
     Dosage: 5 G TOTAL
     Route: 048
     Dates: start: 20160208, end: 20160208

REACTIONS (4)
  - Sopor [Recovered/Resolved]
  - Psychomotor retardation [Recovered/Resolved]
  - Intentional self-injury [Recovered/Resolved]
  - Intentional overdose [Recovered/Resolved]

NARRATIVE: CASE EVENT DATE: 20160208
